FAERS Safety Report 7495719-2 (Version None)
Quarter: 2011Q2

REPORT INFORMATION
  Report Type: 
  Country: None (occurrence: None)
  Receive Date: 20110523
  Receipt Date: 20110511
  Transmission Date: 20111010
  Serious: Yes (Hospitalization)
  Sender: FDA-Public Use
  Company Number: GB-JNJFOC-20110407702

PATIENT
  Sex: Male

DRUGS (3)
  1. STELARA [Suspect]
     Indication: PSORIASIS
     Dosage: TO DATE, THE PATIENT HAD THREE INJECTIONS
     Route: 058
  2. ANTIBIOTICS NOS [Concomitant]
     Indication: INFECTION
     Route: 065
  3. ORAMORPH SR [Suspect]
     Indication: SKIN ULCER
     Route: 065

REACTIONS (8)
  - GASTRIC INFECTION [None]
  - FEELING ABNORMAL [None]
  - ANXIETY [None]
  - INFECTED SKIN ULCER [None]
  - HYPERHIDROSIS [None]
  - HOSPITALISATION [None]
  - EMOTIONAL DISTRESS [None]
  - INSOMNIA [None]
